FAERS Safety Report 25632182 (Version 4)
Quarter: 2025Q3

REPORT INFORMATION
  Report Type: Spontaneous
  Country: CL (occurrence: CL)
  Receive Date: 20250801
  Receipt Date: 20250908
  Transmission Date: 20251020
  Serious: No
  Sender: PFIZER
  Company Number: CL-PFIZER INC-202500152031

PATIENT
  Age: 16 Year
  Sex: Male

DRUGS (1)
  1. GENOTROPIN [Suspect]
     Active Substance: SOMATROPIN

REACTIONS (2)
  - Device defective [Unknown]
  - Drug dose omission by device [Unknown]

NARRATIVE: CASE EVENT DATE: 20250726
